FAERS Safety Report 8192199-9 (Version None)
Quarter: 2012Q1

REPORT INFORMATION
  Report Type: 
  Country: None (occurrence: None)
  Receive Date: 20120307
  Receipt Date: 20120223
  Transmission Date: 20120608
  Serious: Yes (Other)
  Sender: FDA-Public Use
  Company Number: US-ELI_LILLY_AND_COMPANY-US201202007912

PATIENT
  Sex: Male

DRUGS (2)
  1. CYMBALTA [Suspect]
     Dosage: 60 MG, QD
     Dates: start: 20110701
  2. CYMBALTA [Suspect]
     Indication: FIBROMYALGIA
     Dosage: 30 MG, QD
     Dates: start: 20110601, end: 20110701

REACTIONS (6)
  - INTENTIONAL DRUG MISUSE [None]
  - FIBROMYALGIA [None]
  - SYNCOPE [None]
  - PARAESTHESIA [None]
  - WITHDRAWAL SYNDROME [None]
  - DIZZINESS [None]
